FAERS Safety Report 4395879-6 (Version None)
Quarter: 2004Q3

REPORT INFORMATION
  Report Type: 
  Country: None (occurrence: None)
  Receive Date: 20040713
  Receipt Date: 20040705
  Transmission Date: 20050211
  Serious: Yes (Death)
  Sender: FDA-Public Use
  Company Number: PHBS2004GB09114

PATIENT
  Age: 68 Year
  Sex: Male

DRUGS (2)
  1. DESFERRIOXAMINE MESYLATE [Suspect]
  2. BLOOD TRANSFUSION, AUXILIARY PRODUCTS [Concomitant]

REACTIONS (10)
  - CEREBRAL INFARCTION [None]
  - LOCALISED INFECTION [None]
  - MENINGITIS [None]
  - MUCORMYCOSIS [None]
  - MYOCARDIAL INFARCTION [None]
  - PAIN IN EXTREMITY [None]
  - PERICARDITIS [None]
  - RENAL INFARCT [None]
  - SPLENIC INFARCTION [None]
  - ZYGOMYCOSIS [None]
